FAERS Safety Report 19686324 (Version 1)
Quarter: 2021Q3

REPORT INFORMATION
  Report Type: Spontaneous
  Country: US (occurrence: US)
  Receive Date: 20210811
  Receipt Date: 20210811
  Transmission Date: 20211014
  Serious: Yes (Hospitalization, Other)
  Sender: FDA-Public Use
  Company Number: US-SA-2021SA261237

PATIENT
  Age: 41 Year
  Sex: Male

DRUGS (1)
  1. ELITEK [Suspect]
     Active Substance: RASBURICASE
     Indication: NEOPLASM MALIGNANT
     Dosage: 0.6 MG

REACTIONS (2)
  - Adverse event [Unknown]
  - Acute leukaemia [Unknown]
